FAERS Safety Report 4950083-5 (Version None)
Quarter: 2006Q1

REPORT INFORMATION
  Report Type: 
  Country: None (occurrence: None)
  Receive Date: 20060320
  Receipt Date: 20060320
  Transmission Date: 20060701
  Serious: Yes (Other)
  Sender: FDA-Public Use
  Company Number: None

PATIENT
  Age: 41 Year
  Sex: Male
  Weight: 70.3075 kg

DRUGS (1)
  1. OXYCODONE [Suspect]
     Indication: ARTHRALGIA
     Dosage: 4 TABLETS TWICE DAILY ORAL   TWO MONTH TRIAL
     Route: 048
     Dates: start: 20051206, end: 20060320

REACTIONS (6)
  - ANOREXIA [None]
  - CONSTIPATION [None]
  - DRUG INEFFECTIVE [None]
  - HEADACHE [None]
  - PHARMACEUTICAL PRODUCT COMPLAINT [None]
  - WEIGHT DECREASED [None]
